FAERS Safety Report 9282699 (Version 1)
Quarter: 2013Q2

REPORT INFORMATION
  Report Type: Spontaneous
  Country: US (occurrence: None)
  Receive Date: 20130509
  Receipt Date: 20130509
  Transmission Date: 20140414
  Serious: No
  Sender: FDA-Public Use
  Company Number: None

PATIENT
  Age: 74 Year
  Sex: Female
  Weight: 63.5 kg

DRUGS (1)
  1. OMEPRAZOLE [Suspect]
     Indication: BARRETT^S OESOPHAGUS
     Dosage: ONE CAPSULE EVERY DAY PO
     Route: 048
     Dates: start: 20120505, end: 20120514

REACTIONS (9)
  - Headache [None]
  - Pyrexia [None]
  - Chills [None]
  - Oropharyngeal pain [None]
  - Joint swelling [None]
  - Local swelling [None]
  - Arthralgia [None]
  - Chest discomfort [None]
  - Cough [None]
